FAERS Safety Report 25665215 (Version 4)
Quarter: 2025Q3

REPORT INFORMATION
  Report Type: Spontaneous
  Country: US (occurrence: US)
  Receive Date: 20250811
  Receipt Date: 20250918
  Transmission Date: 20251020
  Serious: Yes (Death, Life-Threatening, Hospitalization, Other)
  Sender: SANOFI AVENTIS
  Company Number: US-SA-2025SA234376

PATIENT
  Age: 58 Year
  Sex: Male
  Weight: 90.91 kg

DRUGS (15)
  1. DUPIXENT [Suspect]
     Active Substance: DUPILUMAB
     Indication: Asthma
     Dosage: 300 MG, QOW
     Route: 058
     Dates: start: 20250714
  2. ATORVASTATIN [Concomitant]
     Active Substance: ATORVASTATIN
  3. METOPROLOL [Concomitant]
     Active Substance: METOPROLOL
  4. PEPCID [Concomitant]
     Active Substance: FAMOTIDINE
  5. GABAPENTIN [Concomitant]
     Active Substance: GABAPENTIN
  6. VIBRAMYCIN [Concomitant]
     Active Substance: DOXYCYCLINE
     Dosage: 1 DF, Q12H
     Route: 048
     Dates: start: 20250819
  7. DECADRON [Concomitant]
     Active Substance: DEXAMETHASONE
     Dosage: 1 DF, BID
     Route: 048
     Dates: start: 20250616
  8. PROTONIX [Concomitant]
     Active Substance: PANTOPRAZOLE SODIUM
     Dosage: 1 DF, QD
     Route: 048
     Dates: start: 20250820
  9. VALIUM [Concomitant]
     Active Substance: DIAZEPAM
     Route: 048
     Dates: start: 20250610
  10. ELIQUIS [Concomitant]
     Active Substance: APIXABAN
     Dosage: 1 DF, BID
     Route: 048
     Dates: start: 20250819
  11. MORPHINE [Concomitant]
     Active Substance: MORPHINE
     Dosage: 30 MG, Q12H
     Route: 048
  12. ZYLOPRIM [Concomitant]
     Active Substance: ALLOPURINOL
     Dosage: 300 MG, QD
     Route: 048
  13. OXYGEN [Concomitant]
     Active Substance: OXYGEN
     Route: 045
  14. BREZTRI [Concomitant]
     Active Substance: BUDESONIDE\FORMOTEROL\GLYCOPYRROLATE
     Dosage: TAKE 2 PUFFS BY INHALATION 2 TIMES DAILY
     Route: 055
     Dates: start: 20250714
  15. HEPARIN [Concomitant]
     Active Substance: HEPARIN SODIUM
     Route: 042

REACTIONS (20)
  - Pulmonary embolism [Fatal]
  - Cerebrovascular accident [Unknown]
  - Hip fracture [Unknown]
  - Emphysema [Unknown]
  - Acute respiratory failure [Unknown]
  - Hypoxia [Unknown]
  - Pulmonary infarction [Unknown]
  - Pneumonia [Unknown]
  - Dyspnoea [Unknown]
  - Syncope [Unknown]
  - Metastases to central nervous system [Unknown]
  - Generalised anxiety disorder [Unknown]
  - Road traffic accident [Unknown]
  - Brain oedema [Unknown]
  - Lymphadenopathy mediastinal [Unknown]
  - Injury [Unknown]
  - Chest wall mass [Unknown]
  - Agitation [Unknown]
  - Cognitive disorder [Unknown]
  - Mobility decreased [Unknown]

NARRATIVE: CASE EVENT DATE: 20250701
